FAERS Safety Report 11379424 (Version 3)
Quarter: 2016Q3

REPORT INFORMATION
  Report Type: Spontaneous
  Country: JP (occurrence: JP)
  Receive Date: 20150814
  Receipt Date: 20160825
  Transmission Date: 20161109
  Serious: Yes (Life-Threatening, Hospitalization, Other)
  Sender: FDA-Public Use
  Company Number: JP-BRISTOL-MYERS SQUIBB COMPANY-BMS-2015-052654

PATIENT
  Age: 59 Year
  Sex: Female

DRUGS (1)
  1. ELIQUIS [Suspect]
     Active Substance: APIXABAN
     Indication: CEREBROVASCULAR ACCIDENT PROPHYLAXIS
     Dosage: 5 MG, BID
     Route: 048
     Dates: end: 20150703

REACTIONS (4)
  - Retroperitoneal haematoma [Recovering/Resolving]
  - Cardiac tamponade [Recovering/Resolving]
  - Transfusion [Unknown]
  - Cardioversion [Unknown]

NARRATIVE: CASE EVENT DATE: 20150704
